FAERS Safety Report 10367752 (Version 1)
Quarter: 2014Q1

REPORT INFORMATION
  Report Type: Spontaneous
  Country: US (occurrence: None)
  Receive Date: 20140306
  Receipt Date: 20140306
  Transmission Date: 20141002
  Serious: Yes (Hospitalization)
  Sender: FDA-Public Use
  Company Number: 163-21880-12102376

PATIENT
  Age: 58 Year
  Sex: Male
  Weight: 76.2 kg

DRUGS (30)
  1. REVLIMID (LENALIDOMIDE) (CAPSULES) [Suspect]
     Indication: PLASMA CELL MYELOMA
     Route: 048
     Dates: start: 20120905, end: 20121014
  2. DEXAMETHASONE (DEXAMETHASONE) [Suspect]
     Indication: PLASMA CELL MYELOMA
     Route: 048
     Dates: start: 20120905, end: 20121010
  3. ELOTUZUMAB (ELOTUZUMAB) (INJECTION) [Suspect]
     Indication: PLASMA CELL MYELOMA
     Route: 042
     Dates: start: 20120905, end: 20121010
  4. OMEPRAZOLE (OMEPRAZOLE) [Concomitant]
  5. LOTRIMIN (CLOTRIMAZOLE) [Concomitant]
  6. STEROID (CORTICOSTEROIDS (CREAM) [Concomitant]
  7. 460 MIX DIABETUSS (SULFOGAIACOL) [Concomitant]
  8. OXIGEN (OXYGEN) [Concomitant]
  9. ASPIRINE (ACETYLSALICYLIC ACID) [Concomitant]
  10. AZITHROMYCIN (AZITHROMYCIN) [Concomitant]
  11. BENADRYL (DIPHENHYDRAMINE HYDROCHLORIDE) [Concomitant]
  12. SOLU-MEDROL (METHYLPREDNISOLONE SODIUM SUCCINATE) [Concomitant]
  13. MORPHINE (MORPHINE) [Concomitant]
  14. PRAVASTATIN (PRAVASTATIN) [Concomitant]
  15. METFORMIN (METFORMIN) [Concomitant]
  16. ACETAMINOPHEN (PARACETAMOL) [Concomitant]
  17. ZOFRAN (ONDANSETRON HYDROCHLORIDE) [Concomitant]
  18. NEUPOGEN (FILGRASTIM) [Concomitant]
  19. MAGNESIUM OXIDE (MAGNESIUM OXIDE) [Concomitant]
  20. POTASSIUM CHLORIDE (POTASSIUM CHLORIDE) [Concomitant]
  21. GABAPENTIN (GABAPENTIN) [Concomitant]
  22. ALEVE (NAPROXEN SODIUM) [Concomitant]
  23. ROBITUSSIN (GUAIFENESIN) [Concomitant]
  24. PEPCID (FAMOTIDINE) [Concomitant]
  25. ZANTAC (RANITIDINE HYDROCHLORIDE) [Concomitant]
  26. FLUIDS (ALL OTHER THERAPEUTIC PRODUCTS) [Concomitant]
  27. LEVAQUIN (LEVOFLOXACIN) [Concomitant]
  28. IBUPROFEN (IBUPROFEN) [Concomitant]
  29. INFLUENZA VACCINE (INFLUIENZA VACCINE) [Concomitant]
  30. PNEUMOCOCCAL VACCINE (PNEUMOCOCCAL VACCINE) [Concomitant]

REACTIONS (1)
  - Thrombocytopenia [None]
